FAERS Safety Report 12387717 (Version 1)
Quarter: 2016Q2

REPORT INFORMATION
  Report Type: Spontaneous
  Country: US (occurrence: US)
  Receive Date: 20160520
  Receipt Date: 20160520
  Transmission Date: 20160815
  Serious: No
  Sender: FDA-Public Use
  Company Number: PHEH2016US012468

PATIENT
  Age: 45 Year
  Sex: Male

DRUGS (1)
  1. VOTRIENT [Suspect]
     Active Substance: PAZOPANIB HYDROCHLORIDE
     Indication: LIP AND/OR ORAL CAVITY CANCER
     Dosage: 4 DF, QD (800 MG, DAILY 1HR BEFORE MEALS OR 2HRS AFTER MEALS)
     Route: 048

REACTIONS (1)
  - Product use issue [Unknown]
